FAERS Safety Report 8873544 (Version 1)
Quarter: 2012Q4

REPORT INFORMATION
  Report Type: 
  Country: US (occurrence: US)
  Receive Date: 20121030
  Receipt Date: 20121030
  Transmission Date: 20130627
  Serious: No
  Sender: FDA-Public Use
  Company Number: US-VERTEX PHARMACEUTICAL INC.-2012-023220

PATIENT
  Age: 59 None
  Sex: Female
  Weight: 54 kg

DRUGS (4)
  1. INCIVEK [Suspect]
     Indication: HEPATITIS C
     Dosage: 750 mg, tid
     Route: 048
     Dates: start: 20120623
  2. RIBAVIRIN [Suspect]
     Indication: HEPATITIS C
     Dosage: 3 DF, bid
     Dates: start: 20120623
  3. RIBAVIRIN [Suspect]
     Dosage: 2 tabs ib ma + 1 tab in pm
  4. PEGASYS [Suspect]
     Indication: HEPATITIS C
     Dosage: 180 ?g, UNK
     Route: 058
     Dates: start: 20120623

REACTIONS (8)
  - Chest discomfort [Recovered/Resolved]
  - Abdominal distension [Not Recovered/Not Resolved]
  - Oral fungal infection [Recovered/Resolved]
  - Weight increased [Not Recovered/Not Resolved]
  - Feeling of body temperature change [Recovered/Resolved]
  - Dry mouth [Not Recovered/Not Resolved]
  - Malaise [Not Recovered/Not Resolved]
  - Anaemia [Unknown]
